FAERS Safety Report 24575113 (Version 1)
Quarter: 2024Q4

REPORT INFORMATION
  Report Type: Spontaneous
  Country: US (occurrence: US)
  Receive Date: 20241104
  Receipt Date: 20241104
  Transmission Date: 20250115
  Serious: No
  Sender: HIKMA
  Company Number: HIKM2408170

PATIENT

DRUGS (1)
  1. BUPRENORPHINE [Suspect]
     Active Substance: BUPRENORPHINE
     Indication: Pain
     Dosage: UNKNOWN
     Route: 060

REACTIONS (7)
  - Disease progression [Unknown]
  - Feeling abnormal [Unknown]
  - Social avoidant behaviour [Unknown]
  - Depressed mood [Unknown]
  - Hypersomnia [Unknown]
  - Quality of life decreased [Unknown]
  - Behaviour disorder [Unknown]
